FAERS Safety Report 15485672 (Version 1)
Quarter: 2018Q4

REPORT INFORMATION
  Report Type: Spontaneous
  Country: US (occurrence: US)
  Receive Date: 20181010
  Receipt Date: 20181010
  Transmission Date: 20190205
  Serious: Yes (Other)
  Sender: FDA-Public Use
  Company Number: US-AKORN PHARMACEUTICALS-2018AKN01486

PATIENT
  Age: 18 Year
  Sex: Male
  Weight: 90.7 kg

DRUGS (4)
  1. MYORISAN [Suspect]
     Active Substance: ISOTRETINOIN
     Dosage: 40 MG, 1X/DAY
     Route: 048
     Dates: start: 2018, end: 20180906
  2. WHEY PROTEIN [Concomitant]
     Active Substance: WHEY
  3. MYORISAN [Suspect]
     Active Substance: ISOTRETINOIN
     Indication: ACNE
     Dosage: 30 MG, 2X/DAY
     Route: 048
     Dates: start: 2018, end: 2018
  4. MYORISAN [Suspect]
     Active Substance: ISOTRETINOIN
     Indication: ACNE
     Dosage: 40 MG, 1X/DAY
     Route: 048
     Dates: start: 201710, end: 2018

REACTIONS (13)
  - Dry skin [Recovering/Resolving]
  - Chromaturia [Not Recovered/Not Resolved]
  - Rash [Recovering/Resolving]
  - Feeling abnormal [Not Recovered/Not Resolved]
  - Epistaxis [Recovering/Resolving]
  - Hypoaesthesia [Not Recovered/Not Resolved]
  - Unevaluable event [Unknown]
  - Off label use [Recovered/Resolved]
  - Mood swings [Recovering/Resolving]
  - Hepatic enzyme increased [Unknown]
  - Testicular mass [Recovered/Resolved]
  - Libido decreased [Not Recovered/Not Resolved]
  - Chapped lips [Recovering/Resolving]

NARRATIVE: CASE EVENT DATE: 201710
